FAERS Safety Report 6667702-8 (Version None)
Quarter: 2010Q2

REPORT INFORMATION
  Report Type: 
  Country: None (occurrence: None)
  Receive Date: 20100405
  Receipt Date: 20100329
  Transmission Date: 20101027
  Serious: Yes (Death, Other)
  Sender: FDA-Public Use
  Company Number: GB-TEVA-229493ISR

PATIENT
  Age: 36 Year
  Sex: Male

DRUGS (4)
  1. DIAZEPAM [Suspect]
  2. CLOZAPINE [Suspect]
     Indication: SCHIZOPHRENIA
  3. DIAMORPHINE [Suspect]
  4. SULPIRIDE [Suspect]

REACTIONS (16)
  - ARTERIOSCLEROSIS CORONARY ARTERY [None]
  - CARDIOVASCULAR INSUFFICIENCY [None]
  - CONJUNCTIVAL HYPERAEMIA [None]
  - CONTUSION [None]
  - DEPRESSED LEVEL OF CONSCIOUSNESS [None]
  - DRUG TOXICITY [None]
  - EPISTAXIS [None]
  - EXCORIATION [None]
  - INJURY [None]
  - MOUTH HAEMORRHAGE [None]
  - NEEDLE TRACK MARKS [None]
  - PETECHIAE [None]
  - PULMONARY OEDEMA [None]
  - RESPIRATORY DEPRESSION [None]
  - SCAR [None]
  - SKIN INJURY [None]
